FAERS Safety Report 8222497-1 (Version None)
Quarter: 2012Q1

REPORT INFORMATION
  Report Type: 
  Country: None (occurrence: None)
  Receive Date: 20120320
  Receipt Date: 20120316
  Transmission Date: 20120608
  Serious: Yes (Death, Life-Threatening, Hospitalization, Other)
  Sender: FDA-Public Use
  Company Number: PHHY2012JP007218

PATIENT
  Sex: Male
  Weight: 62 kg

DRUGS (9)
  1. LASIX [Concomitant]
     Indication: PANCREATIC NEUROENDOCRINE TUMOUR
     Dosage: 20 MG, UNK
     Route: 048
  2. TOPOTECAN [Concomitant]
     Indication: PANCREATIC NEUROENDOCRINE TUMOUR
     Dosage: UNK UKN, UNK
     Dates: start: 20110909, end: 20111001
  3. IRINOTECAN HYDROCHLORIDE [Concomitant]
     Dosage: UNK UKN, UNK
  4. TS 1 [Concomitant]
     Indication: PANCREATIC NEUROENDOCRINE TUMOUR
     Dosage: UNK UKN, UNK
     Route: 048
     Dates: start: 20110127, end: 20110801
  5. CISPLATIN [Concomitant]
     Indication: PANCREATIC NEUROENDOCRINE TUMOUR
     Dosage: UNK UKN, UNK
     Dates: start: 20110909, end: 20111001
  6. LANSOPRAZOLE [Concomitant]
     Indication: PANCREATIC NEUROENDOCRINE TUMOUR
     Dosage: 15 MG, UNK
     Route: 048
  7. AFINITOR [Suspect]
     Indication: PANCREATIC NEUROENDOCRINE TUMOUR
     Dosage: 10 MG, DAILY
     Route: 048
     Dates: start: 20111117, end: 20120105
  8. SANDOSTATIN LAR [Concomitant]
     Indication: PANCREATIC NEUROENDOCRINE TUMOUR
     Dosage: 30 MG, UNK
     Route: 030
     Dates: end: 20120105
  9. ALDACTONE [Concomitant]
     Indication: PANCREATIC NEUROENDOCRINE TUMOUR
     Dosage: 50 MG, UNK
     Route: 048

REACTIONS (8)
  - HEPATIC FUNCTION ABNORMAL [None]
  - CHOLANGITIS [None]
  - JAUNDICE CHOLESTATIC [None]
  - ARRHYTHMIA [None]
  - NEOPLASM MALIGNANT [None]
  - SEPSIS [None]
  - RESPIRATORY FAILURE [None]
  - NEOPLASM PROGRESSION [None]
